FAERS Safety Report 14566221 (Version 1)
Quarter: 2018Q1

REPORT INFORMATION
  Report Type: Spontaneous
  Country: US (occurrence: US)
  Receive Date: 20180223
  Receipt Date: 20180223
  Transmission Date: 20180509
  Serious: No
  Sender: FDA-Public Use
  Company Number: US-PFIZER INC-2018074450

PATIENT
  Age: 60 Year
  Sex: Female
  Weight: 77.11 kg

DRUGS (3)
  1. CELEBREX [Concomitant]
     Active Substance: CELECOXIB
     Indication: BACK PAIN
     Dosage: 400MG, ONE CAPSULE, TWICE DAILY
     Route: 048
     Dates: start: 2014
  2. LYRICA [Suspect]
     Active Substance: PREGABALIN
     Indication: MUSCLE SPASMS
     Dosage: 100MG ONE CAPSULE BY MOUTH NIGHTLY
     Route: 048
  3. LYRICA [Suspect]
     Active Substance: PREGABALIN
     Indication: PAIN

REACTIONS (2)
  - Rhinorrhoea [Recovering/Resolving]
  - Aphonia [Recovering/Resolving]

NARRATIVE: CASE EVENT DATE: 20180215
